FAERS Safety Report 9936103 (Version 1)
Quarter: 2014Q1

REPORT INFORMATION
  Report Type: Spontaneous
  Country: US (occurrence: US)
  Receive Date: 20140228
  Receipt Date: 20140228
  Transmission Date: 20141002
  Serious: No
  Sender: FDA-Public Use
  Company Number: US-AMGEN-USASP2013087437

PATIENT
  Age: 59 Year
  Sex: Male
  Weight: 90.7 kg

DRUGS (7)
  1. ENBREL [Suspect]
     Indication: PRODUCT USED FOR UNKNOWN INDICATION
     Dosage: 50 MG, QWK
     Route: 058
  2. LIPITOR [Concomitant]
     Dosage: 20 MG, UNK
  3. TRICOR                             /00090101/ [Concomitant]
     Dosage: 48 MG, UNK
  4. ASPIRIN [Concomitant]
     Dosage: 325 MG, UNK
  5. WELLBUTRIN [Concomitant]
     Dosage: 100 MG, UNK
  6. METOPROLOL [Concomitant]
     Dosage: 50 MG, UNK
  7. PREVACID [Concomitant]
     Dosage: 15 MG, UNK

REACTIONS (3)
  - Drug ineffective [Unknown]
  - Psoriatic arthropathy [Unknown]
  - Psoriasis [Unknown]
